FAERS Safety Report 10029305 (Version 2)
Quarter: 2014Q2

REPORT INFORMATION
  Report Type: Spontaneous
  Country: BR (occurrence: BR)
  Receive Date: 20140321
  Receipt Date: 20140403
  Transmission Date: 20141212
  Serious: No
  Sender: FDA-Public Use
  Company Number: BR-MERCK-1403BRA009238

PATIENT
  Age: 63 Year
  Sex: Female
  Weight: 97 kg

DRUGS (5)
  1. JANUVIA [Suspect]
     Indication: DIABETES MELLITUS
     Dosage: 100 MG, QD
     Route: 048
     Dates: start: 2014, end: 20140319
  2. JANUVIA [Suspect]
     Dosage: UNK
     Route: 048
     Dates: start: 20140327
  3. OMEPRAZOLE (GENERIC DRUG) [Concomitant]
     Indication: DYSPEPSIA
     Dosage: 20 MG, QD
     Route: 048
     Dates: start: 2011
  4. OMEPRAZOLE (GENERIC DRUG) [Concomitant]
     Indication: HIATUS HERNIA
  5. OMEPRAZOLE (GENERIC DRUG) [Concomitant]
     Indication: GASTROOESOPHAGEAL REFLUX DISEASE

REACTIONS (8)
  - Fatigue [Recovered/Resolved]
  - Pain in extremity [Recovered/Resolved]
  - Oropharyngeal pain [Recovered/Resolved]
  - Rhinitis [Recovered/Resolved]
  - Sneezing [Recovered/Resolved]
  - Headache [Recovered/Resolved]
  - Hiatus hernia [Recovered/Resolved]
  - Wrong technique in drug usage process [Unknown]
